FAERS Safety Report 9512393 (Version 1)
Quarter: 2013Q1

REPORT INFORMATION
  Report Type: Spontaneous
  Country: US (occurrence: None)
  Receive Date: 20130305
  Receipt Date: 20130305
  Transmission Date: 20140127
  Serious: Yes (Other)
  Sender: FDA-Public Use
  Company Number: 163-21880-12102361

PATIENT
  Age: 81 Year
  Sex: Female

DRUGS (6)
  1. REVLIMID (LENALIDOMIDE) (25 MILLIGRAM, CAPSULES) [Suspect]
     Indication: PLASMA CELL MYELOMA
     Dosage: 25 MG, 1 IN 1 D, PO
     Route: 048
     Dates: start: 20120404
  2. ENALAPRIL (ENALAPRIL) (UNKNOWN) [Concomitant]
  3. DEXAMETHASONE (DEXAMETHASONE) (UNKNOWN) [Concomitant]
  4. AMBIEN (ZOLPIDEM TARTRATE) (UNKNOWN) [Concomitant]
  5. SYNTHROID (LEVOTHYROXINE SODIUM) (UNKNOWN) [Concomitant]
  6. ASA (ACETYLSALICYLIC ACID) (UNKNOWN) [Concomitant]

REACTIONS (1)
  - Amnesia [None]
